FAERS Safety Report 7484525-0 (Version None)
Quarter: 2011Q2

REPORT INFORMATION
  Report Type: 
  Country: None (occurrence: None)
  Receive Date: 20110413
  Receipt Date: 20110422
  Transmission Date: 20111010
  Serious: Yes (Disabling)
  Sender: FDA-Public Use
  Company Number: AEUSA201100110

PATIENT
  Age: 12 Year
  Sex: Male

DRUGS (8)
  1. AUGMENTIN (01000301) [Concomitant]
  2. SINGULAIR [Concomitant]
  3. ADVAIR DISKUS 100/50 [Concomitant]
  4. HIZENTRA [Suspect]
     Indication: IMMUNODEFICIENCY COMMON VARIABLE
     Dosage: 5 GTM, QW, SC
     Route: 058
     Dates: start: 20110401, end: 20110401
  5. OLOPATADINE [Concomitant]
  6. GAMUNEX-C- (10 PCT) [Suspect]
     Indication: IMMUNODEFICIENCY COMMON VARIABLE
     Dosage: 5 GM, QW, SC
     Route: 058
     Dates: start: 20110328
  7. XYZAL [Concomitant]
  8. MUCINEX [Concomitant]

REACTIONS (5)
  - PAIN IN EXTREMITY [None]
  - GAIT DISTURBANCE [None]
  - NAUSEA [None]
  - ARTHRALGIA [None]
  - URTICARIA [None]
